FAERS Safety Report 14221966 (Version 1)
Quarter: 2017Q4

REPORT INFORMATION
  Report Type: Spontaneous
  Country: US (occurrence: US)
  Receive Date: 20171124
  Receipt Date: 20171124
  Transmission Date: 20180321
  Serious: Yes (Other)
  Sender: FDA-Public Use
  Company Number: US-BRISTOL-MYERS SQUIBB COMPANY-BMS-2017-106522

PATIENT

DRUGS (1)
  1. ABILIFY [Suspect]
     Active Substance: ARIPIPRAZOLE
     Indication: PRODUCT USED FOR UNKNOWN INDICATION
     Dosage: UNK
     Route: 065
     Dates: start: 2008, end: 2012

REACTIONS (6)
  - Compulsive shopping [Recovered/Resolved]
  - Mental disorder [Unknown]
  - Emotional distress [Unknown]
  - Gambling disorder [Recovered/Resolved]
  - Brain injury [Unknown]
  - Injury [Unknown]
